FAERS Safety Report 9326916 (Version 11)
Quarter: 2014Q2

REPORT INFORMATION
  Report Type: Spontaneous
  Country: US (occurrence: US)
  Receive Date: 20130604
  Receipt Date: 20140616
  Transmission Date: 20141212
  Serious: Yes (Other)
  Sender: FDA-Public Use
  Company Number: US-PFIZER INC-2013167110

PATIENT
  Age: 75 Year
  Sex: Male

DRUGS (14)
  1. SUTENT [Suspect]
     Indication: RENAL CANCER
     Dosage: 50 MG DAILY, CYCLIC (DAILY TWO WEEKS ON AND ONE WEEK OFF)
     Dates: start: 20130515, end: 2013
  2. SUTENT [Suspect]
     Dosage: 50 MG, UNK
     Dates: start: 20140122
  3. AMLODIPINE [Concomitant]
     Indication: BLOOD PRESSURE INCREASED
     Dosage: 2.5 MG, 1X/DAY
  4. AMLODIPINE [Concomitant]
     Dosage: 5 MG, 1X/DAY
  5. SIMVASTATIN [Concomitant]
     Dosage: UNK
  6. METOPROLOL [Concomitant]
     Dosage: UNK
  7. CENTRUM SILVER [Concomitant]
     Dosage: UNK
  8. CALCIUM WITH VITAMIN D [Concomitant]
     Dosage: UNK
  9. TYLENOL [Concomitant]
     Dosage: UNK, PRN
  10. OMEPRAZOLE [Concomitant]
     Dosage: UNK
  11. COMPAZINE [Concomitant]
     Dosage: UNK
  12. TRAMADOL [Concomitant]
     Dosage: UNK, PRN
  13. ENSURE [Concomitant]
     Dosage: UNK
  14. LORAZEPAM [Concomitant]
     Dosage: UNK

REACTIONS (29)
  - Tooth infection [Not Recovered/Not Resolved]
  - Disorientation [Unknown]
  - Aphasia [Unknown]
  - Diarrhoea [Recovered/Resolved]
  - Abdominal pain [Not Recovered/Not Resolved]
  - Nausea [Unknown]
  - Vomiting [Unknown]
  - Blood pressure increased [Recovered/Resolved]
  - Dysgeusia [Recovering/Resolving]
  - Appetite disorder [Recovering/Resolving]
  - Fatigue [Not Recovered/Not Resolved]
  - Oral pain [Unknown]
  - Yellow skin [Recovering/Resolving]
  - Red blood cell count decreased [Unknown]
  - Headache [Not Recovered/Not Resolved]
  - Hot flush [Unknown]
  - Gastrointestinal sounds abnormal [Unknown]
  - Flatulence [Unknown]
  - Abdominal distension [Unknown]
  - Weight decreased [Recovering/Resolving]
  - Platelet count decreased [Unknown]
  - Hyperaesthesia [Unknown]
  - Hyperkeratosis [Unknown]
  - Palmar-plantar erythrodysaesthesia syndrome [Recovering/Resolving]
  - Thyroid function test abnormal [Unknown]
  - Blister [Unknown]
  - Constipation [Unknown]
  - Speech disorder [Unknown]
  - Gait disturbance [Recovering/Resolving]
